FAERS Safety Report 6164012-2 (Version None)
Quarter: 2009Q2

REPORT INFORMATION
  Report Type: 
  Country: None (occurrence: None)
  Receive Date: 20090422
  Receipt Date: 20090416
  Transmission Date: 20091009
  Serious: Yes (Death)
  Sender: FDA-Public Use
  Company Number: ES-SANOFI-SYNTHELABO-D01200805217

PATIENT
  Sex: Female

DRUGS (12)
  1. IBUPROFEN [Concomitant]
     Dates: start: 20070214
  2. SEVREDOL [Concomitant]
     Dates: start: 20070214
  3. DURAGESIC-100 [Concomitant]
     Dates: start: 20070214
  4. LIPEMOL [Concomitant]
  5. OMEPRAZOL [Concomitant]
     Dates: start: 20070116
  6. NOLOTIL [Concomitant]
     Dates: start: 20071218
  7. LEUCOVORIN CALCIUM [Suspect]
     Route: 042
     Dates: start: 20080703, end: 20080703
  8. FLUOROURACIL [Suspect]
     Dosage: 400 MG/M?, IV BOLUS D1+D2 FOLLOWED BY 5-FU 2400 MG/M? OVER 46-HOUR CONTINUOUS INFUSION.
     Route: 042
     Dates: start: 20080703, end: 20080703
  9. OXALIPLATIN [Suspect]
     Route: 042
     Dates: start: 20080703, end: 20080703
  10. SR57746 OR PLACEBO [Suspect]
     Indication: NEUROLOGICAL SYMPTOM
     Route: 048
     Dates: start: 20080116, end: 20080715
  11. DUPHALAC [Concomitant]
     Dates: start: 20060501
  12. PRIMPERAN [Concomitant]
     Dates: start: 20080522

REACTIONS (1)
  - DEATH [None]
